FAERS Safety Report 22031173 (Version 2)
Quarter: 2023Q1

REPORT INFORMATION
  Report Type: Spontaneous
  Country: US (occurrence: US)
  Receive Date: 20230223
  Receipt Date: 20230317
  Transmission Date: 20230418
  Serious: No
  Sender: FDA-Public Use
  Company Number: US-JNJFOC-20230231947

PATIENT
  Sex: Male
  Weight: 140.74 kg

DRUGS (2)
  1. SPRAVATO [Suspect]
     Active Substance: ESKETAMINE
     Indication: Depression
     Dates: start: 202201, end: 202202
  2. DESVENLAFAXINE [Concomitant]
     Active Substance: DESVENLAFAXINE
     Indication: Product used for unknown indication
     Dosage: ABOUT 90 DAYS TOTAL, 60 DAYS AT 50MG DAILY AND LAST 30 DAYS WERE 100 MG

REACTIONS (2)
  - Drug ineffective [Unknown]
  - Device issue [Unknown]
